FAERS Safety Report 13498859 (Version 2)
Quarter: 2017Q2

REPORT INFORMATION
  Report Type: Spontaneous
  Country: US (occurrence: US)
  Receive Date: 20170501
  Receipt Date: 20170515
  Transmission Date: 20170830
  Serious: Yes (Death, Other)
  Sender: FDA-Public Use
  Company Number: US-JNJFOC-20170428855

PATIENT
  Sex: Male

DRUGS (2)
  1. INVOKANA [Suspect]
     Active Substance: CANAGLIFLOZIN
     Indication: DIABETES MELLITUS
     Route: 048
     Dates: start: 20140911
  2. INVOKANA [Suspect]
     Active Substance: CANAGLIFLOZIN
     Indication: DIABETES MELLITUS MANAGEMENT
     Route: 048
     Dates: start: 20140911

REACTIONS (10)
  - Chronic kidney disease [Fatal]
  - Nausea [Unknown]
  - Cerebrovascular accident [Unknown]
  - Renal disorder [Unknown]
  - Abdominal pain [Unknown]
  - Dyspnoea [Unknown]
  - Cerebral haemorrhage [Fatal]
  - Hypotension [Unknown]
  - Dehydration [Unknown]
  - Vomiting [Unknown]
